FAERS Safety Report 21765796 (Version 2)
Quarter: 2023Q1

REPORT INFORMATION
  Report Type: Spontaneous
  Country: ES (occurrence: ES)
  Receive Date: 20221222
  Receipt Date: 20230329
  Transmission Date: 20230418
  Serious: Yes (Other)
  Sender: FDA-Public Use
  Company Number: ES-MLMSERVICE-20221202-3958822-1

PATIENT
  Age: 66 Year
  Sex: Female

DRUGS (3)
  1. APIXABAN [Interacting]
     Active Substance: APIXABAN
     Indication: Atrial fibrillation
     Dosage: UNK
     Route: 048
  2. APIXABAN [Interacting]
     Active Substance: APIXABAN
     Indication: Anticoagulant therapy
  3. SERTRALINE [Interacting]
     Active Substance: SERTRALINE HYDROCHLORIDE
     Indication: Antidepressant therapy
     Dosage: UNK
     Route: 065

REACTIONS (3)
  - Upper gastrointestinal haemorrhage [Unknown]
  - Drug interaction [Recovered/Resolved]
  - Ecchymosis [Unknown]
